FAERS Safety Report 5531129-2 (Version None)
Quarter: 2007Q4

REPORT INFORMATION
  Report Type: 
  Country: None (occurrence: None)
  Receive Date: 20071130
  Receipt Date: 20071121
  Transmission Date: 20080405
  Serious: Yes (Hospitalization)
  Sender: FDA-Public Use
  Company Number: US-PFIZER INC-2007098569

PATIENT
  Sex: Female

DRUGS (2)
  1. NORVASC [Suspect]
  2. DRUG, UNSPECIFIED [Suspect]

REACTIONS (1)
  - HEPATIC CIRRHOSIS [None]
